FAERS Safety Report 8837490 (Version 1)
Quarter: 2012Q4

REPORT INFORMATION
  Report Type: 
  Country: FR (occurrence: FR)
  Receive Date: 20121012
  Receipt Date: 20121012
  Transmission Date: 20130627
  Serious: Yes (Hospitalization)
  Sender: FDA-Public Use
  Company Number: FR-SANOFI-AVENTIS-2012SA074447

PATIENT
  Age: 75 Year
  Sex: Male

DRUGS (7)
  1. LASILIX [Suspect]
     Indication: DRUG USE FOR UNKNOWN INDICATION
     Dosage: dose: On alternate days 250 mg, and 500 mg
     Route: 048
     Dates: end: 201105
  2. LASILIX [Suspect]
     Indication: DRUG USE FOR UNKNOWN INDICATION
     Dosage: dose: On alternate days 250 mg, and 500 mg
     Route: 048
     Dates: start: 201105
  3. TRIATEC [Suspect]
     Indication: DRUG USE FOR UNKNOWN INDICATION
     Route: 048
     Dates: end: 20110503
  4. ALDACTONE [Suspect]
     Indication: DRUG USE FOR UNKNOWN INDICATION
     Dosage: strength: 25mg
     Route: 048
     Dates: end: 20110503
  5. AMIODARONE [Concomitant]
     Dosage: 1 DF daily in the morning
     Route: 048
  6. BISOPROLOL [Concomitant]
     Dosage: in the morning
     Route: 048
  7. LEVOTHYROX [Concomitant]
     Dosage: daily in the morning.
     Route: 048

REACTIONS (2)
  - Hyperkalaemia [Recovered/Resolved]
  - Renal failure acute [Recovered/Resolved with Sequelae]
